FAERS Safety Report 24063884 (Version 2)
Quarter: 2025Q1

REPORT INFORMATION
  Report Type: Spontaneous
  Country: US (occurrence: US)
  Receive Date: 20240709
  Receipt Date: 20250117
  Transmission Date: 20250408
  Serious: No
  Sender: SANOFI AVENTIS
  Company Number: US-SA-SAC20240705000214

PATIENT
  Age: 34 Year
  Sex: Female
  Weight: 47.627 kg

DRUGS (3)
  1. DUPIXENT [Suspect]
     Active Substance: DUPILUMAB
     Indication: Dermatitis atopic
     Dosage: 300MG, QOW
     Route: 058
     Dates: start: 202401
  2. TACROLIMUS [Concomitant]
     Active Substance: TACROLIMUS
  3. NORETHINDRONE ACETATE [Concomitant]
     Active Substance: NORETHINDRONE ACETATE

REACTIONS (4)
  - Foreign body sensation in eyes [Recovering/Resolving]
  - Ocular hyperaemia [Recovering/Resolving]
  - Eye irritation [Recovering/Resolving]
  - Conjunctivitis [Recovered/Resolved]

NARRATIVE: CASE EVENT DATE: 20240301
